FAERS Safety Report 17168887 (Version 1)
Quarter: 2019Q4

REPORT INFORMATION
  Report Type: Spontaneous
  Country: SE (occurrence: SE)
  Receive Date: 20191218
  Receipt Date: 20191218
  Transmission Date: 20200122
  Serious: Yes (Hospitalization)
  Sender: FDA-Public Use
  Company Number: SE-009507513-1912SWE004435

PATIENT
  Sex: Female

DRUGS (3)
  1. MIRTAZAPINE. [Suspect]
     Active Substance: MIRTAZAPINE
     Dosage: 6X30 MG
     Route: 048
     Dates: start: 20180718, end: 20180718
  2. PROPAVAN [Suspect]
     Active Substance: PROPIOMAZINE
     Dosage: 12 PIECES
     Route: 048
     Dates: start: 20180718, end: 20180718
  3. MELATONIN [Suspect]
     Active Substance: MELATONIN
     Dosage: 12 PIECES
     Route: 048
     Dates: start: 20180718, end: 20180718

REACTIONS (4)
  - Dizziness [Unknown]
  - Intentional self-injury [Unknown]
  - Intentional overdose [Unknown]
  - Nausea [Unknown]

NARRATIVE: CASE EVENT DATE: 20180718
